FAERS Safety Report 6355202-4 (Version None)
Quarter: 2009Q3

REPORT INFORMATION
  Report Type: 
  Country: None (occurrence: None)
  Receive Date: 20090909
  Receipt Date: 20090825
  Transmission Date: 20100115
  Serious: Yes (Other)
  Sender: FDA-Public Use
  Company Number: AUR-APL-2009-00498

PATIENT
  Sex: Female

DRUGS (4)
  1. MIRTAZAPINE [Suspect]
  2. TEGRETOL [Suspect]
     Indication: BIPOLAR DISORDER
     Dosage: 1100-600MG,QD-BID
  3. ESTRADERM [Suspect]
     Indication: HORMONE REPLACEMENT THERAPY
     Dosage: TRANSDERMAL
     Route: 062
  4. VITAMIN B6 [Concomitant]

REACTIONS (3)
  - CONFUSIONAL STATE [None]
  - NEUTROPENIA [None]
  - WHITE BLOOD CELL COUNT ABNORMAL [None]
